FAERS Safety Report 19509879 (Version 1)
Quarter: 2021Q3

REPORT INFORMATION
  Report Type: Report from Study
  Country: AU (occurrence: AU)
  Receive Date: 20210708
  Receipt Date: 20210708
  Transmission Date: 20211014
  Serious: Yes (Hospitalization)
  Sender: FDA-Public Use
  Company Number: NVSC2021AU028805

PATIENT
  Age: 60 Year
  Sex: Female

DRUGS (1)
  1. MAYZENT [Suspect]
     Active Substance: SIPONIMOD
     Indication: SECONDARY PROGRESSIVE MULTIPLE SCLEROSIS
     Dosage: 1 MG (MON/WED/FRI AS PER INSTRUCTIONS FROM HEALTH CARE TEAM)
     Route: 065
     Dates: start: 20210201

REACTIONS (10)
  - Muscle spasms [Unknown]
  - Lymphocyte count decreased [Unknown]
  - Movement disorder [Unknown]
  - Rhinovirus infection [Unknown]
  - Pain in extremity [Unknown]
  - Muscular weakness [Unknown]
  - Joint swelling [Unknown]
  - Confusional state [Unknown]
  - Fatigue [Unknown]
  - Dyspnoea [Unknown]

NARRATIVE: CASE EVENT DATE: 20210201
